FAERS Safety Report 5208905-9 (Version None)
Quarter: 2007Q1

REPORT INFORMATION
  Report Type: 
  Country: None (occurrence: None)
  Receive Date: 20070116
  Receipt Date: 20070110
  Transmission Date: 20070707
  Serious: Yes (Other)
  Sender: FDA-Public Use
  Company Number: 2006AP04822

PATIENT
  Age: 67 Year
  Sex: Female

DRUGS (3)
  1. IRESSA [Suspect]
     Indication: LUNG NEOPLASM MALIGNANT
     Route: 048
  2. IRESSA [Suspect]
     Route: 048
  3. IRESSA [Suspect]
     Route: 048

REACTIONS (4)
  - ASCITES [None]
  - GINGIVITIS [None]
  - INTESTINAL OBSTRUCTION [None]
  - RASH [None]
